FAERS Safety Report 11699788 (Version 1)
Quarter: 2015Q4

REPORT INFORMATION
  Report Type: Spontaneous
  Country: IT (occurrence: IT)
  Receive Date: 20151105
  Receipt Date: 20151105
  Transmission Date: 20160304
  Serious: Yes (Hospitalization)
  Sender: FDA-Public Use
  Company Number: IT-ACCORD-034990

PATIENT
  Age: 44 Year
  Sex: Female
  Weight: 57 kg

DRUGS (4)
  1. ESOMEPRAZOLE [Concomitant]
     Active Substance: ESOMEPRAZOLE
     Route: 048
  2. GEMZAR [Suspect]
     Active Substance: GEMCITABINE HYDROCHLORIDE
     Indication: BILIARY NEOPLASM
     Dosage: 1G
     Route: 042
     Dates: start: 20151007, end: 20151007
  3. CISPLATIN ACCORD [Suspect]
     Active Substance: CISPLATIN
     Indication: BILIARY NEOPLASM
     Dosage: 1MG/ML
     Route: 042
     Dates: start: 20151007, end: 20151007
  4. CREON [Concomitant]
     Active Substance: PANCRELIPASE AMYLASE\PANCRELIPASE LIPASE\PANCRELIPASE PROTEASE
     Route: 048

REACTIONS (2)
  - Epilepsy [Recovering/Resolving]
  - Off label use [Unknown]

NARRATIVE: CASE EVENT DATE: 20151013
